FAERS Safety Report 21589602 (Version 1)
Quarter: 2022Q4

REPORT INFORMATION
  Report Type: Spontaneous
  Country: DE (occurrence: DE)
  Receive Date: 20221114
  Receipt Date: 20221114
  Transmission Date: 20230112
  Serious: Yes (Hospitalization)
  Sender: FDA-Public Use
  Company Number: None

PATIENT
  Age: 58 Year
  Sex: Female
  Weight: 45 kg

DRUGS (11)
  1. CAPECITABINE [Suspect]
     Active Substance: CAPECITABINE
     Indication: Product used for unknown indication
     Dosage: 500 MG, 3-0-3-0
  2. ESOMEPRAZOLE [Concomitant]
     Active Substance: ESOMEPRAZOLE
     Dosage: 40 MG, 1-0-1-0
  3. MORPHINE [Concomitant]
     Active Substance: MORPHINE
     Dosage: 10 MG, 1-0-1-0
  4. IMODIUM [Concomitant]
     Active Substance: LOPERAMIDE HYDROCHLORIDE
     Dosage: 2 MG, 1-1-1-0
  5. ASPIRIN [Concomitant]
     Active Substance: ASPIRIN
     Dosage: 100MG, 0-1-0-0
  6. AMPHO-MORONAL [Concomitant]
     Active Substance: AMPHOTERICIN B
     Dosage: 100 MG/ML, 1-1-1-1
  7. ESTRIOL [Concomitant]
     Active Substance: ESTRIOL
     Dosage: 0-0-0-1, STRENGTH-0.5 MG
  8. LEVETIRACETAM [Concomitant]
     Active Substance: LEVETIRACETAM
     Dosage: 500MG, 1-0-1-0
  9. CLINIMIX [Concomitant]
     Active Substance: ALANINE\ARGININE\DEXTROSE\GLYCINE\HISTIDINE\ISOLEUCINE\LEUCINE\LYSINE\METHIONINE\PHENYLALANINE\PROLI
     Dosage: 0-0-0-1,  5% G-E BICAMERAL BAG 1.5 L
  10. APLONA [Concomitant]
     Dosage: 1-1-1-0, SACHETS OF POWDER, 4.9 G/SACHET
  11. ENTECAVIR [Concomitant]
     Active Substance: ENTECAVIR
     Dosage: 0.5 MG, 0-0-0-1

REACTIONS (2)
  - Urinary tract stoma complication [Recovering/Resolving]
  - Feeling cold [Recovering/Resolving]
